FAERS Safety Report 25047483 (Version 2)
Quarter: 2025Q2

REPORT INFORMATION
  Report Type: Spontaneous
  Country: CA (occurrence: CA)
  Receive Date: 20250306
  Receipt Date: 20250507
  Transmission Date: 20250717
  Serious: Yes (Other)
  Sender: DUCHESNAY
  Company Number: CA-DUCHESNAY-2025CA000082

PATIENT

DRUGS (1)
  1. DICLECTIN [Suspect]
     Active Substance: DOXYLAMINE SUCCINATE\PYRIDOXINE HYDROCHLORIDE
     Indication: Foetal exposure during pregnancy
     Dosage: PRESCRIBED-CONSUME DICLECTIN FOR 42 WEEKS DAILY, 3 TIMES
     Route: 064

REACTIONS (15)
  - Suicidal ideation [Not Recovered/Not Resolved]
  - Suicide attempt [Not Recovered/Not Resolved]
  - Maternal drugs affecting foetus [Not Recovered/Not Resolved]
  - Mental disorder [Not Recovered/Not Resolved]
  - Memory impairment [Not Recovered/Not Resolved]
  - Nervous system disorder [Not Recovered/Not Resolved]
  - Depression [Not Recovered/Not Resolved]
  - Anxiety [Not Recovered/Not Resolved]
  - Cognitive disorder [Not Recovered/Not Resolved]
  - Abnormal behaviour [Not Recovered/Not Resolved]
  - Impulsive behaviour [Not Recovered/Not Resolved]
  - Muscular weakness [Not Recovered/Not Resolved]
  - Apathy [Not Recovered/Not Resolved]
  - Somatic dysfunction [Not Recovered/Not Resolved]
  - Sensory disturbance [Not Recovered/Not Resolved]
